APPROVED DRUG PRODUCT: VALIUM
Active Ingredient: DIAZEPAM
Strength: 10MG
Dosage Form/Route: TABLET;ORAL
Application: N013263 | Product #006 | TE Code: AB
Applicant: WAYLIS THERAPEUTICS LLC
Approved: Approved Prior to Jan 1, 1982 | RLD: Yes | RS: Yes | Type: RX